FAERS Safety Report 8137469-5 (Version None)
Quarter: 2012Q1

REPORT INFORMATION
  Report Type: 
  Country: None (occurrence: None)
  Receive Date: 20120213
  Receipt Date: 20120203
  Transmission Date: 20120608
  Serious: Yes (Other)
  Sender: FDA-Public Use
  Company Number: 2012SP004268

PATIENT
  Age: 79 Year
  Sex: Female
  Weight: 62.5964 kg

DRUGS (4)
  1. METOPROLOL TARTRATE [Concomitant]
  2. MIRALAX [Suspect]
     Indication: CONSTIPATION
     Dosage: ONCE;PO
     Route: 048
     Dates: start: 20120113
  3. DIGOXIN [Concomitant]
  4. METFORMIN HCL [Concomitant]

REACTIONS (3)
  - HEADACHE [None]
  - EYE PAIN [None]
  - BLOOD PRESSURE INCREASED [None]
